FAERS Safety Report 11291098 (Version 10)
Quarter: 2023Q4

REPORT INFORMATION
  Report Type: Report from Study
  Country: CO (occurrence: CO)
  Receive Date: 20150722
  Receipt Date: 20231130
  Transmission Date: 20240109
  Serious: Yes (Disabling, Other)
  Sender: FDA-Public Use
  Company Number: PHHY2015CO021693

PATIENT
  Age: 55 Year
  Sex: Male
  Weight: 101 kg

DRUGS (5)
  1. TASIGNA [Suspect]
     Active Substance: NILOTINIB
     Indication: Chronic myeloid leukaemia
     Dosage: 2 DF, Q12H
     Route: 048
     Dates: start: 201406
  2. TASIGNA [Suspect]
     Active Substance: NILOTINIB
     Dosage: 200 MG, QID
     Route: 048
     Dates: start: 20141217, end: 20170718
  3. TASIGNA [Suspect]
     Active Substance: NILOTINIB
     Dosage: 400 MG, Q12H
     Route: 048
  4. TASIGNA [Suspect]
     Active Substance: NILOTINIB
     Dosage: UNK
     Route: 065
     Dates: start: 2014
  5. ACETAMINOPHEN [Concomitant]
     Active Substance: ACETAMINOPHEN
     Indication: Product used for unknown indication
     Dosage: 500 MG, Q8H
     Route: 065

REACTIONS (25)
  - Mobility decreased [Unknown]
  - Gait disturbance [Unknown]
  - Myalgia [Not Recovered/Not Resolved]
  - Pain in extremity [Unknown]
  - Arthralgia [Not Recovered/Not Resolved]
  - Hyperphagia [Unknown]
  - Weight increased [Unknown]
  - Tendon disorder [Unknown]
  - Stress [Unknown]
  - Illness [Unknown]
  - Panic attack [Unknown]
  - Pain [Unknown]
  - Dry skin [Unknown]
  - Memory impairment [Unknown]
  - Anxiety [Unknown]
  - Blister [Unknown]
  - Decreased appetite [Unknown]
  - Diarrhoea [Unknown]
  - Depressed mood [Unknown]
  - Influenza [Recovered/Resolved]
  - Malaise [Recovered/Resolved]
  - Nasal congestion [Recovered/Resolved]
  - Weight increased [Recovered/Resolved]
  - Gait disturbance [Recovered/Resolved]
  - Weight decreased [Recovered/Resolved]

NARRATIVE: CASE EVENT DATE: 20150112
